FAERS Safety Report 4417220-2 (Version None)
Quarter: 2004Q3

REPORT INFORMATION
  Report Type: 
  Country: None (occurrence: None)
  Receive Date: 20040806
  Receipt Date: 20040517
  Transmission Date: 20050211
  Serious: Yes (Other)
  Sender: FDA-Public Use
  Company Number: DE-ROCHE-367914

PATIENT
  Age: 35 Year
  Sex: Female
  Weight: 82 kg

DRUGS (2)
  1. XENICAL [Suspect]
     Route: 048
     Dates: start: 20040514, end: 20040514
  2. L-THYROXIN 100 [Concomitant]
     Route: 048

REACTIONS (5)
  - BURNING SENSATION [None]
  - DIZZINESS [None]
  - DYSPNOEA [None]
  - ORAL DISCOMFORT [None]
  - TACHYCARDIA [None]
